FAERS Safety Report 5700266-1 (Version None)
Quarter: 2008Q2

REPORT INFORMATION
  Report Type: 
  Country: None (occurrence: None)
  Receive Date: 20080410
  Receipt Date: 20080328
  Transmission Date: 20081010
  Serious: Yes (Other)
  Sender: FDA-Public Use
  Company Number: FR-PFIZER INC-2007067882

PATIENT
  Sex: Male
  Weight: 70 kg

DRUGS (11)
  1. VORICONAZOLE [Suspect]
     Dates: start: 20060501, end: 20070815
  2. VORICONAZOLE [Suspect]
     Dates: start: 20070501, end: 20070715
  3. PROGRAF [Concomitant]
     Route: 048
  4. IMUREL [Concomitant]
  5. CORTANCYL [Concomitant]
     Route: 048
  6. ZITHROMAX [Concomitant]
  7. NEXIUM [Concomitant]
  8. PREVISCAN [Concomitant]
  9. NOVONORM [Concomitant]
  10. ELISOR [Concomitant]
  11. MYCOPHENOLATE MOFETIL [Concomitant]
     Route: 048

REACTIONS (2)
  - BLISTER [None]
  - PHOTOSENSITIVITY REACTION [None]
